FAERS Safety Report 7020506-9 (Version None)
Quarter: 2010Q3

REPORT INFORMATION
  Report Type: 
  Country: None (occurrence: None)
  Receive Date: 20100929
  Receipt Date: 20100920
  Transmission Date: 20110219
  Serious: Yes (Hospitalization)
  Sender: FDA-Public Use
  Company Number: US-ROCHE-728755

PATIENT

DRUGS (2)
  1. BEVACIZUMAB [Suspect]
     Dosage: 0.05 ML
     Route: 031
  2. RANIBIZUMAB [Suspect]
     Dosage: 0.05 ML
     Route: 031

REACTIONS (3)
  - LACRIMATION INCREASED [None]
  - PAIN [None]
  - SUPRAVENTRICULAR TACHYCARDIA [None]
